FAERS Safety Report 23543539 (Version 2)
Quarter: 2024Q1

REPORT INFORMATION
  Report Type: Report from Study
  Country: TH (occurrence: TH)
  Receive Date: 20240220
  Receipt Date: 20240327
  Transmission Date: 20240410
  Serious: Yes (Hospitalization, Other)
  Sender: FDA-Public Use
  Company Number: TH-TAKEDA-2024TUS014256

PATIENT
  Age: 58 Year
  Sex: Female

DRUGS (2)
  1. BRIGATINIB [Suspect]
     Active Substance: BRIGATINIB
     Indication: Non-small cell lung cancer
     Dosage: 90 MILLIGRAM, QD
     Route: 048
     Dates: start: 20240110
  2. BRIGATINIB [Suspect]
     Active Substance: BRIGATINIB
     Dosage: 180 MILLIGRAM, QD
     Route: 048

REACTIONS (7)
  - Non-small cell lung cancer [Unknown]
  - Carcinoembryonic antigen increased [Unknown]
  - Abdominal pain lower [Unknown]
  - Decreased appetite [Unknown]
  - Productive cough [Unknown]
  - Diarrhoea [Unknown]
  - Dyspnoea [Unknown]
